FAERS Safety Report 4267268-6 (Version None)
Quarter: 2004Q1

REPORT INFORMATION
  Report Type: 
  Country: None (occurrence: None)
  Receive Date: 20040107
  Receipt Date: 20031225
  Transmission Date: 20041129
  Serious: Yes (Hospitalization)
  Sender: FDA-Public Use
  Company Number: 2003AP04077

PATIENT
  Age: 70 Year
  Sex: Male

DRUGS (12)
  1. IRESSA [Suspect]
     Indication: ADENOCARCINOMA
     Dosage: 250 MG DAILY PO
     Route: 048
     Dates: start: 20031004, end: 20031104
  2. IRESSA [Suspect]
     Indication: NON-SMALL CELL LUNG CANCER STAGE IV
     Dosage: 250 MG DAILY PO
     Route: 048
     Dates: start: 20031004, end: 20031104
  3. IRESSA [Suspect]
     Indication: ADENOCARCINOMA
     Dosage: 250 MG DAILY PO
     Route: 048
     Dates: start: 20031117, end: 20031204
  4. IRESSA [Suspect]
     Indication: NON-SMALL CELL LUNG CANCER STAGE IV
     Dosage: 250 MG DAILY PO
     Route: 048
     Dates: start: 20031117, end: 20031204
  5. TERNELIN [Concomitant]
  6. MOBIC [Concomitant]
  7. TAKEPRON [Concomitant]
  8. FORSENID [Concomitant]
  9. DORAL [Concomitant]
  10. FUNGIZONE [Concomitant]
  11. SELTOUCH [Concomitant]
  12. NAPAGELN [Concomitant]

REACTIONS (6)
  - ANOREXIA [None]
  - ARTHRALGIA [None]
  - DISEASE PROGRESSION [None]
  - METASTASES TO BONE [None]
  - NON-SMALL CELL LUNG CANCER [None]
  - OEDEMA PERIPHERAL [None]
